FAERS Safety Report 9453162 (Version 2)
Quarter: 2013Q3

REPORT INFORMATION
  Report Type: Spontaneous
  Country: DE (occurrence: DE)
  Receive Date: 20130812
  Receipt Date: 20130827
  Transmission Date: 20140515
  Serious: Yes (Hospitalization, Other)
  Sender: FDA-Public Use
  Company Number: DE-NOVOPROD-384537

PATIENT
  Age: 64 Year
  Sex: Male
  Weight: 85 kg

DRUGS (15)
  1. VICTOZA [Suspect]
     Indication: TYPE 2 DIABETES MELLITUS
     Dosage: 1.2 MG
     Route: 058
     Dates: start: 201001
  2. NEBIDO [Suspect]
     Indication: HYPOGONADISM
     Dosage: 1000 MG
     Route: 030
     Dates: start: 201110
  3. NEBIVOLOL [Suspect]
     Indication: HYPERTENSION
     Dosage: 5 MG (0-1/2-0)
     Route: 048
     Dates: start: 2009
  4. NOVORAPID [Concomitant]
     Indication: TYPE 2 DIABETES MELLITUS
     Dosage: ACCORDING TO BLOOD GLUCOSE
  5. RAMIPRIL [Concomitant]
     Indication: HYPERTENSION
     Dosage: 10 MG
     Route: 048
     Dates: start: 2009
  6. METFORMIN [Concomitant]
     Indication: TYPE 2 DIABETES MELLITUS
     Dosage: 2000 MG
     Route: 048
     Dates: start: 2009
  7. LERCANIDIPINE [Concomitant]
     Indication: HYPERTENSION
     Dosage: 20 MG (1/2-0-1/2)
     Route: 048
     Dates: start: 200908
  8. SIMVASTATIN [Concomitant]
     Indication: HYPERLIPIDAEMIA
     Dosage: 40 MG, QD (0-0-1)
     Route: 048
     Dates: start: 200908
  9. PREDNISOLONE [Concomitant]
     Dosage: 100 MG, QD
     Dates: end: 20130311
  10. VALSARTAN [Concomitant]
     Dosage: 320 MG, QD
  11. PANTOZOL                           /01263204/ [Concomitant]
     Dosage: 40 MG, QD (1-0-0)
  12. ALLOPURINOL [Concomitant]
     Dosage: 300 MG, QD (1-0-0)
  13. COTRIM FORTE [Concomitant]
     Dosage: 960 MG, QD
  14. ONDASETRON                         /00955301/ [Concomitant]
     Dosage: 8 MG, QD
     Dates: end: 20130319
  15. NEULASTA [Concomitant]
     Dosage: UNK
     Route: 042

REACTIONS (1)
  - Diffuse large B-cell lymphoma [Unknown]
